FAERS Safety Report 12070323 (Version 1)
Quarter: 2016Q1

REPORT INFORMATION
  Report Type: Spontaneous
  Country: NZ (occurrence: NZ)
  Receive Date: 20160211
  Receipt Date: 20160211
  Transmission Date: 20160526
  Serious: Yes (Hospitalization, Other)
  Sender: FDA-Public Use
  Company Number: NZ-WATSON-2016-02575

PATIENT
  Age: 60 Year
  Sex: Male

DRUGS (3)
  1. LIDOCAINE (UNKNOWN) [Suspect]
     Active Substance: LIDOCAINE
     Indication: LOCAL ANAESTHESIA
     Dosage: 8 ML, UNKNOWN
     Route: 003
  2. LIDOCAINE (UNKNOWN) [Suspect]
     Active Substance: LIDOCAINE
     Dosage: 8 ML, UNK
     Route: 058
  3. METHOTREXATE [Concomitant]
     Active Substance: METHOTREXATE
     Indication: DIFFUSE LARGE B-CELL LYMPHOMA STAGE I
     Dosage: 12.5 MG, CYCLICAL
     Route: 037

REACTIONS (1)
  - Paraesthesia [Recovered/Resolved]
